FAERS Safety Report 17865927 (Version 8)
Quarter: 2022Q3

REPORT INFORMATION
  Report Type: Spontaneous
  Country: US (occurrence: US)
  Receive Date: 20200605
  Receipt Date: 20220705
  Transmission Date: 20221027
  Serious: Yes (Other)
  Sender: FDA-Public Use
  Company Number: US-PFIZER INC-2020220008

PATIENT
  Age: 72 Year
  Sex: Female

DRUGS (5)
  1. IBRANCE [Suspect]
     Active Substance: PALBOCICLIB
     Dosage: 75 MG,
     Dates: start: 20180309
  2. IBRANCE [Suspect]
     Active Substance: PALBOCICLIB
     Dosage: 75 MG
     Dates: start: 20180714
  3. IBRANCE [Suspect]
     Active Substance: PALBOCICLIB
     Dosage: 75 MG
     Dates: start: 20190101
  4. IBRANCE [Suspect]
     Active Substance: PALBOCICLIB
     Dosage: 75 MG
     Dates: start: 20190201
  5. IBRANCE [Suspect]
     Active Substance: PALBOCICLIB
     Dosage: UNK
     Dates: end: 20220630

REACTIONS (12)
  - Thrombosis [Unknown]
  - Vena cava thrombosis [Unknown]
  - Pneumonia [Unknown]
  - Drug ineffective [Unknown]
  - Wheezing [Unknown]
  - Arthralgia [Unknown]
  - Fatigue [Unknown]
  - White blood cell count decreased [Unknown]
  - Red blood cell count decreased [Unknown]
  - Anxiety [Unknown]
  - Cough [Unknown]
  - Product dose omission issue [Unknown]
